FAERS Safety Report 6310457-7 (Version None)
Quarter: 2009Q3

REPORT INFORMATION
  Report Type: 
  Country: None (occurrence: None)
  Receive Date: 20090814
  Receipt Date: 20090811
  Transmission Date: 20100115
  Serious: Yes (Life-Threatening, Hospitalization)
  Sender: FDA-Public Use
  Company Number: US-B.I. PHARMACEUTICALS,INC./RIDGEFIELD-2009-BP-09505BP

PATIENT
  Age: 42 Year
  Sex: Male

DRUGS (1)
  1. ZANTAC 150 [Suspect]
     Indication: DYSPEPSIA
     Dosage: 150 MG
     Route: 048
     Dates: start: 20090701, end: 20090701

REACTIONS (8)
  - ANAPHYLACTIC REACTION [None]
  - DERMATITIS ALLERGIC [None]
  - OEDEMA PERIPHERAL [None]
  - PAIN [None]
  - PRURITUS [None]
  - PRURITUS GENERALISED [None]
  - RASH [None]
  - SWELLING [None]
